FAERS Safety Report 20501611 (Version 1)
Quarter: 2022Q1

REPORT INFORMATION
  Report Type: Spontaneous
  Country: GB (occurrence: GB)
  Receive Date: 20220222
  Receipt Date: 20220222
  Transmission Date: 20220424
  Serious: Yes (Death)
  Sender: FDA-Public Use
  Company Number: GB-PFIZER INC-202200254424

PATIENT

DRUGS (1)
  1. NIPENT [Suspect]
     Active Substance: PENTOSTATIN
     Dosage: UNK

REACTIONS (1)
  - Death [Fatal]
